FAERS Safety Report 7916268-0 (Version None)
Quarter: 2011Q4

REPORT INFORMATION
  Report Type: 
  Country: None (occurrence: None)
  Receive Date: 20111116
  Receipt Date: 20111107
  Transmission Date: 20120403
  Serious: No
  Sender: FDA-Public Use
  Company Number: US-BIOGENIDEC-2011BI042561

PATIENT
  Sex: Female

DRUGS (4)
  1. AVONEX [Concomitant]
     Route: 030
     Dates: start: 20051227
  2. TYSABRI [Suspect]
     Indication: MULTIPLE SCLEROSIS
     Route: 042
     Dates: start: 20091112, end: 20110209
  3. AVONEX [Concomitant]
     Route: 030
  4. AVONEX [Concomitant]
     Indication: MULTIPLE SCLEROSIS
     Route: 030
     Dates: start: 20051201

REACTIONS (3)
  - BALANCE DISORDER [None]
  - FALL [None]
  - DRUG INEFFECTIVE [None]
